FAERS Safety Report 7883972-2 (Version None)
Quarter: 2011Q4

REPORT INFORMATION
  Report Type: 
  Country: None (occurrence: None)
  Receive Date: 20111102
  Receipt Date: 20111024
  Transmission Date: 20120403
  Serious: Yes (Hospitalization)
  Sender: FDA-Public Use
  Company Number: PHHY2011JP86967

PATIENT
  Age: 72 Year
  Sex: Female

DRUGS (21)
  1. SOLU-MEDROL [Concomitant]
     Dosage: 80 MG, UNK
     Dates: start: 20110524
  2. SOLU-MEDROL [Concomitant]
     Dosage: 40 MG, UNK
     Dates: start: 20110528, end: 20110529
  3. SOLU-MEDROL [Concomitant]
     Dosage: 200 MG, UNK
     Dates: start: 20110610
  4. SOLU-MEDROL [Concomitant]
     Dosage: 120 MG, UNK
     Dates: start: 20110611, end: 20110612
  5. DIOVAN [Concomitant]
     Indication: HYPERTENSION
     Dosage: 80 MG, UNK
     Dates: start: 20110420
  6. PLAVIX [Suspect]
     Indication: ANGINA UNSTABLE
     Dosage: 75 MG, QD
     Route: 048
     Dates: start: 20110404, end: 20110420
  7. LACTATED RINGER'S [Concomitant]
     Dosage: 20 ML/HOURS
     Dates: start: 20110606, end: 20110608
  8. SOLU-MEDROL [Concomitant]
     Dosage: 80 MG, UNK
     Dates: start: 20110606
  9. SOLDEM 1 [Concomitant]
     Dosage: 20 ML/HOUR
     Dates: start: 20110611, end: 20110611
  10. SOLU-MEDROL [Concomitant]
     Dosage: 160 MG, UNK
  11. SOLU-MEDROL [Concomitant]
     Dosage: 320 MG, UNK
     Dates: start: 20110607
  12. SODIUM CHLORIDE [Concomitant]
     Dosage: 20 ML/HOURS
     Dates: start: 20110608
  13. PITAVASTATIN CALCIUM [Suspect]
     Indication: HYPERLIPIDAEMIA
     Dosage: 2 MG, QD
     Route: 048
     Dates: start: 20110405, end: 20110506
  14. SOLU-MEDROL [Concomitant]
     Dosage: 400 MG, UNK
     Dates: start: 20110608
  15. PREDNISOLONE [Concomitant]
     Dosage: 50 MG, UNK
     Dates: start: 20110612
  16. PREDNISOLONE [Concomitant]
     Dosage: 15 MG, UNK
     Dates: start: 20110616, end: 20110617
  17. LANSOPRAZOLE [Suspect]
     Indication: PROPHYLAXIS
     Dosage: 15 MG, QD
     Route: 048
     Dates: start: 20110404, end: 20110605
  18. ASPIRIN [Suspect]
     Indication: ANGINA UNSTABLE
     Dosage: 100 MG, QD
     Route: 048
     Dates: start: 20110404
  19. PREDNISOLONE [Concomitant]
     Dosage: 30 MG, UNK
     Dates: start: 20110614
  20. AMLODIN OD [Concomitant]
     Indication: HYPERTENSION
     Dosage: 2.5 MG, UNK
     Route: 048
     Dates: start: 20110420
  21. TEGRETOL [Suspect]
     Indication: TRIGEMINAL NEURALGIA
     Dosage: 200 MG, TID
     Route: 048
     Dates: start: 20110403, end: 20110506

REACTIONS (3)
  - RASH [None]
  - TUBULOINTERSTITIAL NEPHRITIS [None]
  - LIVER DISORDER [None]
